FAERS Safety Report 6059259-X (Version None)
Quarter: 2009Q1

REPORT INFORMATION
  Report Type: 
  Country: None (occurrence: None)
  Receive Date: 20090128
  Receipt Date: 20090128
  Transmission Date: 20090719
  Serious: Yes (Other)
  Sender: FDA-Public Use
  Company Number: None

PATIENT
  Age: 40 Year
  Sex: Female
  Weight: 49.4421 kg

DRUGS (3)
  1. CYMBALTA [Suspect]
     Indication: FIBROMYALGIA
     Dosage: 30MG DAILY PO
     Route: 048
  2. RITALIN [Concomitant]
  3. KLONOPIN [Concomitant]

REACTIONS (2)
  - BRUXISM [None]
  - MUSCLE TIGHTNESS [None]
